FAERS Safety Report 15265250 (Version 1)
Quarter: 2018Q3

REPORT INFORMATION
  Report Type: Spontaneous
  Country: US (occurrence: US)
  Receive Date: 20180723
  Receipt Date: 20180723
  Transmission Date: 20181010
  Serious: Yes (Other)
  Sender: FDA-Public Use
  Company Number: None

PATIENT
  Age: 38 Year
  Sex: Male
  Weight: 80.1 kg

DRUGS (1)
  1. YESCARTA [Suspect]
     Active Substance: AXICABTAGENE CILOLEUCEL
     Indication: DIFFUSE LARGE B-CELL LYMPHOMA
     Route: 042
     Dates: start: 20180611

REACTIONS (18)
  - Cytokine release syndrome [None]
  - Hypoxia [None]
  - Urinary retention [None]
  - Somnolence [None]
  - Liver function test increased [None]
  - Tachycardia [None]
  - Dyspnoea [None]
  - Neutropenia [None]
  - Generalised oedema [None]
  - Disease progression [None]
  - Pyrexia [None]
  - Hypoalbuminaemia [None]
  - Abdominal discomfort [None]
  - Neurotoxicity [None]
  - Tachypnoea [None]
  - Hypotension [None]
  - Pleural effusion [None]
  - Ascites [None]

NARRATIVE: CASE EVENT DATE: 20180611
